FAERS Safety Report 5962033 (Version 2)
Quarter: 2025Q3

REPORT INFORMATION
  Report Type: Spontaneous
  Country: US (occurrence: US)
  Receive Date: 20060117
  Receipt Date: 20250813
  Transmission Date: 20251020
  Serious: Yes (Death, Hospitalization)
  Sender: MERCK SHARP & DOHME LLC
  Company Number: None

PATIENT
  Age: 19 Year
  Sex: Male

DRUGS (4)
  1. CANCIDAS [Suspect]
     Active Substance: CASPOFUNGIN ACETATE
  2. METRONIDAZOLE [Concomitant]
     Active Substance: METRONIDAZOLE
  3. VORICONAZOLE [Concomitant]
     Active Substance: VORICONAZOLE
  4. AMPHOTERICIN B\CHOLESTEROL [Concomitant]
     Active Substance: AMPHOTERICIN B\CHOLESTEROL

REACTIONS (5)
  - Septic shock [Fatal]
  - Drug ineffective [Unknown]
  - Respiratory failure [Unknown]
  - Trichosporon infection [Not Recovered/Not Resolved]
  - Pneumonia [Fatal]
